FAERS Safety Report 7218848-7 (Version None)
Quarter: 2011Q1

REPORT INFORMATION
  Report Type: 
  Country: None (occurrence: None)
  Receive Date: 20110110
  Receipt Date: 20101229
  Transmission Date: 20110831
  Serious: No
  Sender: FDA-Public Use
  Company Number: US-PFIZER INC-2010182427

PATIENT
  Age: 54 Year
  Sex: Female

DRUGS (4)
  1. ADVIL CONGESTION RELIEF [Suspect]
     Dosage: UNK
  2. NEXIUM [Concomitant]
  3. CLARITIN [Concomitant]
  4. NEURONTIN [Concomitant]

REACTIONS (1)
  - ABDOMINAL DISCOMFORT [None]
